FAERS Safety Report 4487883-4 (Version None)
Quarter: 2004Q4

REPORT INFORMATION
  Report Type: 
  Country: None (occurrence: None)
  Receive Date: 20041025
  Receipt Date: 20041014
  Transmission Date: 20050328
  Serious: Yes (Death)
  Sender: FDA-Public Use
  Company Number: HQ6302222JAN2003

PATIENT
  Age: 10 Year
  Sex: Female

DRUGS (4)
  1. DIMETAPP [Suspect]
     Dosage: ORAL
     Route: 048
     Dates: start: 20000330
  2. HALL'S MENTHOL-LYPTUS (EUCALYPTUS OIL/MENTHOL, ) [Suspect]
     Dosage: ORAL
     Route: 048
     Dates: start: 20000330
  3. ROBITUSSIN CF (GUAIFENESIN/DEXTROMETHORPHAN/PHENYLPROPANOLAMINE, SYRUP [Suspect]
     Dosage: ORAL
     Route: 048
     Dates: start: 20000330
  4. TRIAMINIC-DM (DEXTROMETHORPHAN HYDROCBROMIDE/PHENYLPROPANOLAMINE HYDRO [Suspect]
     Dosage: ORAL
     Route: 048
     Dates: start: 20000330

REACTIONS (1)
  - CEREBROVASCULAR ACCIDENT [None]
